FAERS Safety Report 20068058 (Version 2)
Quarter: 2021Q4

REPORT INFORMATION
  Report Type: Report from Study
  Country: IT (occurrence: IT)
  Receive Date: 20211115
  Receipt Date: 20211119
  Transmission Date: 20220304
  Serious: Yes (Other)
  Sender: FDA-Public Use
  Company Number: None

PATIENT
  Age: 28 Year
  Sex: Female

DRUGS (3)
  1. CITALOPRAM [Suspect]
     Active Substance: CITALOPRAM HYDROBROMIDE
     Indication: Product used for unknown indication
     Dosage: 14 DOSAGE FORM, TOTAL
     Route: 048
     Dates: start: 20210627, end: 20210627
  2. XANAX [Suspect]
     Active Substance: ALPRAZOLAM
     Indication: Product used for unknown indication
     Dosage: 16 DOSAGE FORM, TOTAL
     Route: 048
     Dates: start: 20210627, end: 20210627
  3. PANTOPRAZOLE SODIUM [Suspect]
     Active Substance: PANTOPRAZOLE SODIUM
     Indication: Product used for unknown indication
     Dosage: 14 DOSAGE FORM, TOTAL
     Route: 048
     Dates: start: 20210627, end: 20210627

REACTIONS (4)
  - Drug abuse [Recovered/Resolved]
  - Blood creatine phosphokinase increased [Recovered/Resolved]
  - Sinus tachycardia [Recovered/Resolved]
  - Hypotension [Recovered/Resolved]

NARRATIVE: CASE EVENT DATE: 20210627
